FAERS Safety Report 6034991-2 (Version None)
Quarter: 2009Q1

REPORT INFORMATION
  Report Type: 
  Country: None (occurrence: None)
  Receive Date: 20090109
  Receipt Date: 20090106
  Transmission Date: 20090719
  Serious: Yes (Death, Hospitalization)
  Sender: FDA-Public Use
  Company Number: 2006-03071

PATIENT
  Age: 73 Year
  Sex: Male
  Weight: 108 kg

DRUGS (9)
  1. VELCADE [Suspect]
     Indication: B-CELL LYMPHOMA
     Dosage: 3.80 MG, INTRAVENOUS ; 3.80 MG, INTRAVENOUS
     Route: 042
     Dates: start: 20061029
  2. VELCADE [Suspect]
     Indication: B-CELL LYMPHOMA
     Dosage: 3.80 MG, INTRAVENOUS ; 3.80 MG, INTRAVENOUS
     Route: 042
     Dates: start: 20061124
  3. PREVISCAN (FLUINDIONE) [Concomitant]
  4. FLECAINIDE ACETATE [Concomitant]
  5. FOLIC ACID [Concomitant]
  6. LASIX [Concomitant]
  7. CORDARONE [Concomitant]
  8. SOLUSPAN (CARBASALATE CALCIUM) [Concomitant]
  9. ALTIZIDE W/SPIRONOLACTONE (SPIRONOLACTONE, ALTIZIDE) [Concomitant]

REACTIONS (7)
  - ASCITES [None]
  - B-CELL LYMPHOMA [None]
  - CHOLECYSTITIS ACUTE [None]
  - CHOLELITHIASIS [None]
  - DISEASE PROGRESSION [None]
  - RENAL CYST [None]
  - SPLENOMEGALY [None]
